FAERS Safety Report 9230365 (Version 2)
Quarter: 2014Q1

REPORT INFORMATION
  Report Type: Report from Study
  Country: CA (occurrence: CA)
  Receive Date: 20130415
  Receipt Date: 20140220
  Transmission Date: 20141002
  Serious: Yes (Hospitalization)
  Sender: FDA-Public Use
  Company Number: PHHY2010CA65039

PATIENT
  Age: 26 Year
  Sex: Female

DRUGS (15)
  1. EXJADE [Suspect]
     Indication: SICKLE CELL ANAEMIA
     Dosage: 500 MG, QD
     Route: 048
     Dates: start: 2010, end: 20101024
  2. EXJADE [Suspect]
     Dosage: 500 MG, QD
     Dates: start: 20101030, end: 201104
  3. EXJADE [Suspect]
     Dosage: 750 MG
     Route: 048
  4. EXJADE [Suspect]
     Dosage: 250 MG
     Route: 048
     Dates: start: 20120105
  5. EXJADE [Suspect]
     Dosage: 850 MG, UNK
     Route: 048
  6. EXJADE [Suspect]
     Dosage: 1075 MG, QD
     Route: 048
     Dates: start: 201202
  7. EXJADE [Suspect]
     Dosage: 1075 MG, QD
     Route: 048
     Dates: start: 201202, end: 201401
  8. HYDROXYUREA [Concomitant]
     Dosage: UNK UKN, UNK
  9. FOLIC ACID [Concomitant]
     Dosage: 5 MG, QD
  10. PERCOCET [Concomitant]
     Indication: PAIN
     Dosage: UNK UKN, UNK
  11. MORPHINE [Concomitant]
     Indication: PAIN
     Dosage: UNK UKN, UNK
  12. DILAUDID [Concomitant]
     Dosage: UNK UKN, UNK
  13. PHOSPHORUS [Concomitant]
     Dosage: UNK UKN, UNK
  14. MAGNESIUM [Concomitant]
     Dosage: UNK UKN, UNK
  15. HYDREA [Concomitant]
     Dosage: UNK UKN, UNK

REACTIONS (9)
  - Pneumonia [Unknown]
  - Asthma [Unknown]
  - Asthmatic crisis [Unknown]
  - Sickle cell anaemia with crisis [Unknown]
  - Pain [Not Recovered/Not Resolved]
  - Pulmonary oedema [Unknown]
  - Abdominal pain upper [Not Recovered/Not Resolved]
  - Blood iron increased [Unknown]
  - Nausea [Unknown]
